FAERS Safety Report 9426055 (Version 2)
Quarter: 2013Q4

REPORT INFORMATION
  Report Type: Spontaneous
  Country: US (occurrence: US)
  Receive Date: 20130730
  Receipt Date: 20131001
  Transmission Date: 20140711
  Serious: Yes (Other)
  Sender: FDA-Public Use
  Company Number: US-AMGEN-USASP2013051640

PATIENT
  Age: 62 Year
  Sex: Female

DRUGS (1)
  1. PROLIA [Suspect]
     Indication: OSTEOPOROSIS POSTMENOPAUSAL
     Route: 065

REACTIONS (8)
  - Activities of daily living impaired [Unknown]
  - Arthralgia [Unknown]
  - Osteoarthritis [Unknown]
  - Sleep disorder [Unknown]
  - Groin pain [Unknown]
  - Tooth infection [Unknown]
  - Jaw disorder [Unknown]
  - Pain in extremity [Unknown]
